FAERS Safety Report 14339895 (Version 2)
Quarter: 2018Q2

REPORT INFORMATION
  Report Type: Spontaneous
  Country: GB (occurrence: GB)
  Receive Date: 20171230
  Receipt Date: 20180411
  Transmission Date: 20180711
  Serious: Yes (Other)
  Sender: FDA-Public Use
  Company Number: GB-TORRENT-00015898

PATIENT
  Age: 57 Year
  Sex: Female

DRUGS (3)
  1. XEPLION [Suspect]
     Active Substance: PALIPERIDONE PALMITATE
     Indication: SCHIZOPHRENIA
     Dosage: UNKNOWN
     Route: 065
  2. RISPERDAL CONSTA [Concomitant]
     Active Substance: RISPERIDONE
     Indication: SCHIZOPHRENIA
     Dosage: UNKNOWN
     Route: 065
  3. RISPERIDONE. [Suspect]
     Active Substance: RISPERIDONE
     Indication: SCHIZOPHRENIA
     Dosage: UNKNOWN
     Route: 048

REACTIONS (3)
  - Condition aggravated [Recovered/Resolved]
  - Treatment noncompliance [Unknown]
  - Blood prolactin increased [Recovered/Resolved]

NARRATIVE: CASE EVENT DATE: 20130930
